FAERS Safety Report 5750010-7 (Version None)
Quarter: 2008Q2

REPORT INFORMATION
  Report Type: 
  Country: None (occurrence: None)
  Receive Date: 20080527
  Receipt Date: 20080520
  Transmission Date: 20081010
  Serious: Yes (Death, Life-Threatening, Hospitalization)
  Sender: FDA-Public Use
  Company Number: HQWYE835027AUG07

PATIENT
  Sex: Male
  Weight: 13.8 kg

DRUGS (12)
  1. TEMSIROLIMUS [Suspect]
     Indication: GLIOMA
     Route: 042
     Dates: start: 20070807, end: 20070807
  2. TEMSIROLIMUS [Suspect]
     Route: 042
     Dates: start: 20070821, end: 20070821
  3. TYLENOL W/ CODEINE [Concomitant]
     Dosage: 3 ML Q4H PRN
     Route: 048
     Dates: start: 20070801
  4. DEXAMETHASONE TAB [Concomitant]
  5. RANITIDINE [Concomitant]
  6. LORAZEPAM [Concomitant]
  7. NYSTATIN [Concomitant]
  8. COLACE [Concomitant]
  9. MIRALAX [Concomitant]
  10. GLYCOPYRROLATE [Concomitant]
  11. PENTAMIDINE [Concomitant]
     Dosage: 8.5 GM
     Route: 048
     Dates: start: 20070815
  12. OXYCODONE HCL [Concomitant]

REACTIONS (7)
  - BACTERAEMIA [None]
  - BRAIN HERNIATION [None]
  - DISEASE PROGRESSION [None]
  - GRAND MAL CONVULSION [None]
  - PYREXIA [None]
  - RASH [None]
  - STAPHYLOCOCCAL INFECTION [None]
